FAERS Safety Report 25267420 (Version 1)
Quarter: 2025Q2

REPORT INFORMATION
  Report Type: Spontaneous
  Country: US (occurrence: US)
  Receive Date: 20250505
  Receipt Date: 20250505
  Transmission Date: 20250716
  Serious: Yes (Hospitalization, Other)
  Sender: ZYDUS PHARM
  Company Number: US-CADILA HEALTHCARE LIMITED-US-ZYDUS-122906

PATIENT

DRUGS (2)
  1. SEVELAMER [Suspect]
     Active Substance: SEVELAMER
     Indication: End stage renal disease
     Route: 065
  2. SEVELAMER [Suspect]
     Active Substance: SEVELAMER
     Indication: Hyperphosphataemia

REACTIONS (1)
  - Oesophagitis ulcerative [Recovering/Resolving]
